FAERS Safety Report 9461831 (Version 1)
Quarter: 2013Q3

REPORT INFORMATION
  Report Type: Spontaneous
  Country: US (occurrence: None)
  Receive Date: 20130815
  Receipt Date: 20130815
  Transmission Date: 20140515
  Serious: No
  Sender: FDA-Public Use
  Company Number: None

PATIENT
  Age: 51 Year
  Sex: Female

DRUGS (1)
  1. TIROSINT [Suspect]
     Indication: THYROID DISORDER
     Dosage: 1 PILL  TWICE DAILY  TAKEN BY MOUTH
     Route: 048
     Dates: start: 20130528, end: 20130808

REACTIONS (5)
  - Fatigue [None]
  - Alopecia [None]
  - Abdominal pain [None]
  - Hearing impaired [None]
  - Respiratory tract congestion [None]
